FAERS Safety Report 24844361 (Version 1)
Quarter: 2025Q1

REPORT INFORMATION
  Report Type: Spontaneous
  Country: US (occurrence: None)
  Receive Date: 20250114
  Receipt Date: 20250114
  Transmission Date: 20250408
  Serious: No
  Sender: FDA-CTU
  Company Number: None

PATIENT
  Age: 79 Year
  Sex: Male

DRUGS (1)
  1. IOHEXOL [Suspect]
     Active Substance: IOHEXOL
     Indication: Peripheral vascular disorder
     Dates: start: 20241120, end: 20241120

REACTIONS (3)
  - Myocardial infarction [None]
  - Acute kidney injury [None]
  - Throat tightness [None]

NARRATIVE: CASE EVENT DATE: 20241120
